FAERS Safety Report 4947809-3 (Version None)
Quarter: 2006Q1

REPORT INFORMATION
  Report Type: 
  Country: None (occurrence: None)
  Receive Date: 20060320
  Receipt Date: 20060311
  Transmission Date: 20060701
  Serious: Yes (Hospitalization)
  Sender: FDA-Public Use
  Company Number: 2006AC00319

PATIENT
  Age: 51 Year
  Sex: Female

DRUGS (6)
  1. LITHIUM [Suspect]
     Route: 065
  2. QUETIAPINE [Suspect]
     Indication: SCHIZOPHRENIA
     Dosage: 400MG PER DAY
     Route: 048
  3. LEVOTHYROXINE SODIUM [Concomitant]
     Indication: HYPOTHYROIDISM
     Route: 065
  4. SIMVASTATIN [Concomitant]
     Indication: HYPERLIPIDAEMIA
     Route: 065
  5. ACETYLSALICYLIC ACID SRT [Concomitant]
     Indication: CORONARY ARTERY DISEASE
     Route: 065
  6. ATENOLOL [Concomitant]
     Indication: HYPERTENSION
     Route: 065

REACTIONS (5)
  - DIABETES INSIPIDUS [None]
  - DIABETIC KETOACIDOSIS [None]
  - DISEASE RECURRENCE [None]
  - PSYCHOTIC DISORDER [None]
  - WEIGHT INCREASED [None]
